FAERS Safety Report 8459672-7 (Version None)
Quarter: 2012Q2

REPORT INFORMATION
  Report Type: 
  Country: None (occurrence: None)
  Receive Date: 20120622
  Receipt Date: 20120617
  Transmission Date: 20120825
  Serious: Yes (Hospitalization)
  Sender: FDA-Public Use
  Company Number: IL-BRISTOL-MYERS SQUIBB COMPANY-16692162

PATIENT
  Age: 88 Year
  Sex: Female

DRUGS (3)
  1. NORVASC [Concomitant]
     Dates: start: 19890101
  2. APIXABAN [Suspect]
     Indication: THROMBOSIS PROPHYLAXIS
     Dosage: 11OCT09-22JUL10:5MG 31AUG10-UNK:5MG
     Route: 048
     Dates: start: 20100801
  3. GLUCOPHAGE [Suspect]
     Dates: start: 19990101

REACTIONS (1)
  - CONFUSIONAL STATE [None]
